FAERS Safety Report 6637678-8 (Version None)
Quarter: 2010Q1

REPORT INFORMATION
  Report Type: 
  Country: None (occurrence: None)
  Receive Date: 20100315
  Receipt Date: 20100315
  Transmission Date: 20100710
  Serious: Yes (Other)
  Sender: FDA-Public Use
  Company Number: None

PATIENT
  Sex: Female
  Weight: 56.6996 kg

DRUGS (1)
  1. LISINOPRIL [Suspect]
     Indication: HYPERTENSION
     Dosage: 50 MG DAILY BY MOUTH
     Route: 048
     Dates: start: 20100302

REACTIONS (3)
  - COUGH [None]
  - DRUG INTOLERANCE [None]
  - OEDEMA [None]
